FAERS Safety Report 5162461-2 (Version None)
Quarter: 2006Q4

REPORT INFORMATION
  Report Type: 
  Country: None (occurrence: None)
  Receive Date: 20061129
  Receipt Date: 20061129
  Transmission Date: 20070319
  Serious: Yes (Hospitalization)
  Sender: FDA-Public Use
  Company Number: None

PATIENT
  Age: 85 Year
  Sex: Female
  Weight: 66.2252 kg

DRUGS (1)
  1. LYRICA [Suspect]
     Indication: NEURALGIA
     Dosage: 50 MG TID PO
     Route: 048
     Dates: start: 20061127, end: 20061128

REACTIONS (4)
  - COORDINATION ABNORMAL [None]
  - DYSPHEMIA [None]
  - SPEECH DISORDER [None]
  - TREMOR [None]
